FAERS Safety Report 7142615-6 (Version None)
Quarter: 2010Q4

REPORT INFORMATION
  Report Type: 
  Country: None (occurrence: None)
  Receive Date: 20101207
  Receipt Date: 20101129
  Transmission Date: 20110411
  Serious: Yes (Life-Threatening, Hospitalization)
  Sender: FDA-Public Use
  Company Number: US-CELGENEUS-163-21880-10113189

PATIENT
  Sex: Male
  Weight: 73.8 kg

DRUGS (7)
  1. REVLIMID [Suspect]
     Route: 048
     Dates: start: 20100223, end: 20100921
  2. ACYCLOVIR SODIUM [Concomitant]
     Route: 048
  3. AMBIEN [Concomitant]
     Route: 048
  4. CARVEDILOL [Concomitant]
     Route: 048
  5. ASPIRIN [Concomitant]
     Route: 048
  6. METFORMIN HCL [Concomitant]
     Route: 048
  7. FAMOTIDINE [Concomitant]
     Route: 051

REACTIONS (2)
  - PNEUMONIA [None]
  - SEPTIC SHOCK [None]
